FAERS Safety Report 24035352 (Version 2)
Quarter: 2024Q3

REPORT INFORMATION
  Report Type: Report from Study
  Country: US (occurrence: US)
  Receive Date: 20240701
  Receipt Date: 20240719
  Transmission Date: 20241017
  Serious: Yes (Other)
  Sender: OTSUKA
  Company Number: US-OTSUKA-2024_002350

PATIENT
  Age: 43 Year
  Sex: Female

DRUGS (12)
  1. TOLVAPTAN [Suspect]
     Active Substance: TOLVAPTAN
     Indication: Congenital cystic kidney disease
     Dosage: 45 MG, QD (IN THE MORNING (AM))
     Route: 065
     Dates: start: 20221021
  2. TOLVAPTAN [Suspect]
     Active Substance: TOLVAPTAN
     Dosage: 15 MG, QD (IN THE EVENING (PM))
     Route: 065
     Dates: start: 20221021
  3. AMLODIPINE [Concomitant]
     Active Substance: AMLODIPINE BESYLATE
     Indication: Hypertension
     Dosage: 1 DF, QD
     Route: 048
  4. ASPIRIN [Concomitant]
     Active Substance: ASPIRIN
     Indication: Cardiovascular event prophylaxis
     Dosage: 1 DF, QD (IN THE MORNING FOR 90 DAYS)
     Route: 048
  5. BETHANECHOL CHLORIDE [Concomitant]
     Active Substance: BETHANECHOL CHLORIDE
     Indication: Product used for unknown indication
     Dosage: 1 DF, TID
     Route: 048
  6. CALCITRIOL [Concomitant]
     Active Substance: CALCITRIOL
     Indication: Blood parathyroid hormone increased
     Dosage: 1 DF, QD (IN MORNING FOR 30 DAYS)
     Route: 048
  7. LOSARTAN [Concomitant]
     Active Substance: LOSARTAN
     Indication: Hypertension
     Dosage: 1 DF, QD (IN MORNING)
     Route: 048
  8. LOVASTATIN [Concomitant]
     Active Substance: LOVASTATIN
     Indication: Blood cholesterol increased
     Dosage: 1 DF, QD (IN MORNING)
     Route: 048
  9. MONTELUKAST [Concomitant]
     Active Substance: MONTELUKAST SODIUM
     Indication: Product used for unknown indication
     Dosage: 1 DF, QD
     Route: 048
  10. SIMPESSE [Concomitant]
     Active Substance: ETHINYL ESTRADIOL\LEVONORGESTREL
     Indication: Product used for unknown indication
     Dosage: 15 DF, QD (0.15 MG-30 MCG (84)/10 MCG(7))
     Route: 048
  11. SODIUM BICARBONATE [Concomitant]
     Active Substance: SODIUM BICARBONATE
     Indication: Metabolic acidosis
     Dosage: 1 DF, BID (FOR 90 DAYS)
     Route: 048
  12. TAMSULOSIN [Concomitant]
     Active Substance: TAMSULOSIN
     Indication: Product used for unknown indication
     Dosage: 1 DF, QD
     Route: 048

REACTIONS (17)
  - Bladder catheterisation [Unknown]
  - Device related infection [Unknown]
  - Klebsiella urinary tract infection [Unknown]
  - Arteriovenous fistula operation [Unknown]
  - Arteriovenous fistula thrombosis [Unknown]
  - Neurogenic bladder [Unknown]
  - Urinary tract infection enterococcal [Unknown]
  - Urinary retention [Unknown]
  - Increased appetite [Unknown]
  - Dyslipidaemia [Unknown]
  - Urinary tract infection [Unknown]
  - Vomiting [Unknown]
  - Nausea [Unknown]
  - Pruritus [Unknown]
  - Hyperuricaemia [Unknown]
  - Thirst [Unknown]
  - Product use issue [Unknown]

NARRATIVE: CASE EVENT DATE: 20231222
